FAERS Safety Report 10483754 (Version 1)
Quarter: 2014Q3

REPORT INFORMATION
  Report Type: Spontaneous
  Country: US (occurrence: None)
  Receive Date: 20140929
  Receipt Date: 20140929
  Transmission Date: 20150326
  Serious: Yes (Other)
  Sender: FDA-Public Use
  Company Number: None

PATIENT
  Age: 50 Year
  Sex: Female

DRUGS (1)
  1. ALENDRONATE 70MG [Suspect]
     Active Substance: ALENDRONATE SODIUM
     Indication: OSTEOPOROSIS
     Dosage: 1 TABLET ONCE WEEKLY ORAL
     Route: 048
     Dates: start: 20140814, end: 20140814

REACTIONS (7)
  - Dyspnoea [None]
  - Cough [None]
  - Throat irritation [None]
  - Oropharyngeal pain [None]
  - Foreign body [None]
  - Drooling [None]
  - Unevaluable event [None]

NARRATIVE: CASE EVENT DATE: 20140814
